FAERS Safety Report 23514721 (Version 2)
Quarter: 2024Q1

REPORT INFORMATION
  Report Type: Spontaneous
  Country: CA (occurrence: CA)
  Receive Date: 20240212
  Receipt Date: 20240318
  Transmission Date: 20240410
  Serious: Yes (Other)
  Sender: FDA-Public Use
  Company Number: CA-BEH-2024168333

PATIENT
  Age: 69 Year
  Sex: Female

DRUGS (6)
  1. HUMAN IMMUNOGLOBULIN G [Suspect]
     Active Substance: HUMAN IMMUNOGLOBULIN G
     Indication: Myositis
     Dosage: UNK, QMT
     Route: 042
     Dates: start: 202306
  2. METHOTREXATE [Suspect]
     Active Substance: METHOTREXATE
     Indication: Myositis
     Dosage: 25 MILLIGRAM, QW
     Route: 058
     Dates: start: 201905, end: 202210
  3. MYFORTIC [Concomitant]
     Active Substance: MYCOPHENOLATE SODIUM
     Dosage: UNK
  4. PANTOPRAZOLE SODIUM [Concomitant]
     Active Substance: PANTOPRAZOLE SODIUM
     Dosage: UNK
  5. PENTOPRIL [Concomitant]
     Active Substance: PENTOPRIL
     Dosage: UNK
  6. PREDNISONE [Concomitant]
     Active Substance: PREDNISONE
     Dosage: 60 MILLIGRAM, QD
     Dates: start: 202212

REACTIONS (6)
  - Interstitial lung disease [Unknown]
  - Overlap syndrome [Unknown]
  - Quality of life decreased [Unknown]
  - Drug ineffective for unapproved indication [Not Recovered/Not Resolved]
  - No adverse event [Unknown]
  - Off label use [Unknown]
